FAERS Safety Report 26171930 (Version 3)
Quarter: 2025Q4

REPORT INFORMATION
  Report Type: Report from Study
  Country: EU (occurrence: EU)
  Receive Date: 20251217
  Receipt Date: 20251221
  Transmission Date: 20260119
  Serious: Yes (Death, Hospitalization)
  Sender: ABBVIE
  Company Number: EU-ABBVIE-6568083

PATIENT
  Age: 82 Year
  Sex: Female

DRUGS (28)
  1. FOSCARBIDOPA\FOSLEVODOPA [Suspect]
     Active Substance: FOSCARBIDOPA\FOSLEVODOPA
     Indication: Parkinson^s disease
     Dosage: CR 0.37ML/H; CR HIGH 0.40ML/H; CR LOW 0.24ML/H; ED 0.20ML
     Route: 058
     Dates: start: 20251124, end: 20251124
  2. FOSCARBIDOPA\FOSLEVODOPA [Suspect]
     Active Substance: FOSCARBIDOPA\FOSLEVODOPA
     Dosage: CR 0.26ML/H; CR 0.30ML/H; CR LOW 0.17ML/H; ED 0.15ML
     Route: 058
     Dates: start: 20251124, end: 202511
  3. FOSCARBIDOPA\FOSLEVODOPA [Suspect]
     Active Substance: FOSCARBIDOPA\FOSLEVODOPA
     Dosage: CR 0.26ML/H; CR HIGH 0.33ML/H; CR LOW 0.15ML/H; ED 0.20ML
     Route: 058
     Dates: start: 202511, end: 202511
  4. FOSCARBIDOPA\FOSLEVODOPA [Suspect]
     Active Substance: FOSCARBIDOPA\FOSLEVODOPA
     Dosage: CR 0.26ML/H; CR HIGH 0.30ML/H; CR LOW 0.15ML/H; ED 0.20ML
     Route: 058
     Dates: start: 202511, end: 202511
  5. FOSCARBIDOPA\FOSLEVODOPA [Suspect]
     Active Substance: FOSCARBIDOPA\FOSLEVODOPA
     Dosage: CR 0.32ML/H; CR HIGH 0.34ML/H; CR LOW 0.20ML/H; ED 0.15ML
     Route: 058
     Dates: start: 2025, end: 2025
  6. FOSCARBIDOPA\FOSLEVODOPA [Suspect]
     Active Substance: FOSCARBIDOPA\FOSLEVODOPA
     Dosage: CR 0.24ML/H; CR HIGH 0.27ML/H; CR LOW 0.18ML/H; ED 0.10ML
     Route: 058
     Dates: start: 202511, end: 202511
  7. FOSCARBIDOPA\FOSLEVODOPA [Suspect]
     Active Substance: FOSCARBIDOPA\FOSLEVODOPA
     Dosage: CR 0.27 ML/H  CR HIGH 0.29 ML/H  CR LOW 0.18 ML/H  ED 0.10 ML.
     Route: 058
     Dates: start: 202511, end: 202511
  8. FOSCARBIDOPA\FOSLEVODOPA [Suspect]
     Active Substance: FOSCARBIDOPA\FOSLEVODOPA
     Dosage: CR 0.29 ML/H, CRH 0.32 ML/H, CRN 0.18 ML/H, ED 0.10 ML.
     Route: 058
     Dates: start: 202511, end: 202511
  9. FOSCARBIDOPA\FOSLEVODOPA [Suspect]
     Active Substance: FOSCARBIDOPA\FOSLEVODOPA
     Dosage: CR 0.30 ML/H, CRH 0.33 ML/H, CRN 0.19 ML/H, ED 0.10ML
     Route: 058
     Dates: start: 2025, end: 2025
  10. FOSCARBIDOPA\FOSLEVODOPA [Suspect]
     Active Substance: FOSCARBIDOPA\FOSLEVODOPA
     Dosage: CR 0.33 ML/H, CRH 0.35 ML/H, CRN 0.20 ML/H, ED 0.15.
     Route: 058
     Dates: start: 2025
  11. FOSCARBIDOPA\FOSLEVODOPA [Suspect]
     Active Substance: FOSCARBIDOPA\FOSLEVODOPA
     Dosage: CR 0.33 ML/H, CR HIGH 0.35 ML/H, CR LOW 0.20 ML/H, ED 0.15
     Route: 058
  12. QUETIAPINE [Concomitant]
     Active Substance: QUETIAPINE
     Indication: Product used for unknown indication
     Dosage: 0-0-0-1
  13. ESOMEPRAZOLE [Concomitant]
     Active Substance: ESOMEPRAZOLE
     Indication: Product used for unknown indication
     Dosage: 1-0-0
  14. GLYCOSAMINOGLYCANS [Concomitant]
     Active Substance: GLYCOSAMINOGLYCANS
     Indication: Product used for unknown indication
     Dosage: HIRUDOID GEL RIGHT. LEG LOCAL 1-0-0
  15. Temesta [Concomitant]
     Indication: Restlessness
     Dosage: UP TO 4X DAILY
  16. Novakut [Concomitant]
     Indication: Product used for unknown indication
     Dosage: 1-1-1
  17. ZONEGRAN [Concomitant]
     Active Substance: ZONISAMIDE
     Indication: Product used for unknown indication
     Dosage: HKPS  0-0-1-0
  18. ACETAMINOPHEN [Concomitant]
     Active Substance: ACETAMINOPHEN
     Indication: Product used for unknown indication
     Dosage: TIME INTERVAL: 0.33333333 DAYS: MAX. 3 DAILY, AS NEEDED
  19. POLYETHYLENE GLYCOL 3350\POTASSIUM CHLORIDE\SODIUM BICARBONATE\SODIUM [Concomitant]
     Active Substance: POLYETHYLENE GLYCOL 3350\POTASSIUM CHLORIDE\SODIUM BICARBONATE\SODIUM CHLORIDE
     Indication: Product used for unknown indication
     Dosage: MOLAXOLE PVL 1-0-0
  20. CHOLECALCIFEROL [Concomitant]
     Active Substance: CHOLECALCIFEROL
     Indication: Product used for unknown indication
     Dosage: OLEOVIT D3 DROPS 10 DROPS DAILY
  21. VOLTAREN [Concomitant]
     Active Substance: DICLOFENAC SODIUM
     Indication: Product used for unknown indication
     Dosage: LOCAL, 1-0-1-0
  22. MIRTAZAPINE [Concomitant]
     Active Substance: MIRTAZAPINE
     Indication: Product used for unknown indication
     Dosage: MIRTABENE 30 MG 0-0-0-1
  23. XARELTO [Concomitant]
     Active Substance: RIVAROXABAN
     Indication: Product used for unknown indication
     Dosage: 1-0-0
  24. LEVOTHYROXINE SODIUM [Concomitant]
     Active Substance: LEVOTHYROXINE SODIUM
     Indication: Product used for unknown indication
     Dosage: 1-0-0
  25. ANTIFLAT [Concomitant]
     Indication: Product used for unknown indication
     Dosage: ANTIFLAT KTBL 1-1-1
  26. XADAGO [Concomitant]
     Active Substance: SAFINAMIDE MESYLATE
     Indication: Product used for unknown indication
     Dosage: 1-0-1-0
     Dates: end: 20251127
  27. METOPROLOL [Concomitant]
     Active Substance: METOPROLOL
     Indication: Product used for unknown indication
     Dosage: . 47.5 MG 1-0-0
  28. Zerodol [Concomitant]
     Indication: Product used for unknown indication

REACTIONS (23)
  - Respiratory disorder [Fatal]
  - Hypokinesia [Recovered/Resolved]
  - Palpitations [Recovered/Resolved]
  - Blood pressure increased [Recovered/Resolved]
  - Dyskinesia [Recovered/Resolved]
  - Confusional state [Unknown]
  - Heart rate increased [Unknown]
  - Oxygen saturation decreased [Unknown]
  - Poor quality sleep [Recovering/Resolving]
  - Dyskinesia [Recovered/Resolved]
  - Panic attack [Unknown]
  - Depressed mood [Not Recovered/Not Resolved]
  - Hypokinesia [Recovered/Resolved]
  - On and off phenomenon [Not Recovered/Not Resolved]
  - Hallucination [Recovered/Resolved]
  - Tearfulness [Unknown]
  - Hallucination, visual [Recovered/Resolved]
  - Hypokinesia [Recovering/Resolving]
  - Screaming [Unknown]
  - General physical health deterioration [Unknown]
  - Aggression [Unknown]
  - Feeding disorder [Not Recovered/Not Resolved]
  - Fluid intake reduced [Not Recovered/Not Resolved]

NARRATIVE: CASE EVENT DATE: 20250101
